FAERS Safety Report 16304648 (Version 2)
Quarter: 2025Q1

REPORT INFORMATION
  Report Type: Spontaneous
  Country: DE (occurrence: DE)
  Receive Date: 20190513
  Receipt Date: 20250321
  Transmission Date: 20250408
  Serious: Yes (Other)
  Sender: ROCHE
  Company Number: DE-ROCHE-2313704

PATIENT
  Age: 70 Year
  Sex: Male

DRUGS (18)
  1. RITUXIMAB [Suspect]
     Active Substance: RITUXIMAB
     Indication: Chronic lymphocytic leukaemia
     Route: 065
     Dates: start: 2007
  2. RITUXIMAB [Suspect]
     Active Substance: RITUXIMAB
     Route: 065
     Dates: start: 2010
  3. RITUXIMAB [Suspect]
     Active Substance: RITUXIMAB
     Route: 065
     Dates: start: 201812
  4. VENETOCLAX [Suspect]
     Active Substance: VENETOCLAX
     Indication: Chronic lymphocytic leukaemia
     Route: 065
  5. VENETOCLAX [Suspect]
     Active Substance: VENETOCLAX
     Route: 065
     Dates: end: 201811
  6. MYCOPHENOLATE MOFETIL [Suspect]
     Active Substance: MYCOPHENOLATE MOFETIL
     Indication: Chronic lymphocytic leukaemia
     Route: 065
  7. IDELALISIB [Suspect]
     Active Substance: IDELALISIB
     Indication: Chronic lymphocytic leukaemia
     Route: 065
     Dates: start: 201812
  8. FLUDARABINE [Concomitant]
     Active Substance: FLUDARABINE PHOSPHATE
     Route: 065
     Dates: start: 2010
  9. FLUDARABINE [Concomitant]
     Active Substance: FLUDARABINE PHOSPHATE
     Route: 065
     Dates: start: 2007
  10. FLUDARABINE [Concomitant]
     Active Substance: FLUDARABINE PHOSPHATE
     Route: 065
     Dates: start: 2004
  11. DEXAMETHASONE [Concomitant]
     Active Substance: DEXAMETHASONE
     Route: 065
     Dates: start: 2013
  12. CYCLOPHOSPHAMIDE [Concomitant]
     Active Substance: CYCLOPHOSPHAMIDE
     Route: 065
     Dates: start: 2004
  13. CYCLOPHOSPHAMIDE [Concomitant]
     Active Substance: CYCLOPHOSPHAMIDE
     Route: 065
     Dates: start: 2007
  14. CYCLOPHOSPHAMIDE [Concomitant]
     Active Substance: CYCLOPHOSPHAMIDE
     Route: 065
     Dates: start: 2010
  15. CYCLOSPORINE [Concomitant]
     Active Substance: CYCLOSPORINE
  16. CHLORAMBUCIL [Concomitant]
     Active Substance: CHLORAMBUCIL
  17. OFATUMUMAB [Concomitant]
     Active Substance: OFATUMUMAB
     Route: 065
     Dates: start: 2013
  18. IBRUTINIB [Concomitant]
     Active Substance: IBRUTINIB

REACTIONS (3)
  - Dermatitis exfoliative generalised [Unknown]
  - Neutropenia [Recovered/Resolved]
  - Pneumonia [Recovered/Resolved]
